FAERS Safety Report 5233191-3 (Version None)
Quarter: 2007Q1

REPORT INFORMATION
  Report Type: 
  Country: None (occurrence: None)
  Receive Date: 20070207
  Receipt Date: 20070131
  Transmission Date: 20070707
  Serious: Yes (Hospitalization)
  Sender: FDA-Public Use
  Company Number: GB-MERCK-0702GBR00002

PATIENT
  Age: 20 Year
  Sex: Female

DRUGS (1)
  1. CANCIDAS [Suspect]
     Indication: SYSTEMIC MYCOSIS
     Route: 041

REACTIONS (1)
  - DRUG INEFFECTIVE [None]
